FAERS Safety Report 8962755 (Version 1)
Quarter: 2012Q4

REPORT INFORMATION
  Report Type: 
  Country: US (occurrence: US)
  Receive Date: 20121213
  Receipt Date: 20121213
  Transmission Date: 20130627
  Serious: No
  Sender: FDA-Public Use
  Company Number: US-PFIZER INC-2012310056

PATIENT
  Age: 58 Year
  Sex: Male
  Weight: 113.38 kg

DRUGS (4)
  1. NORVASC [Suspect]
     Indication: BLOOD PRESSURE HIGH
     Dosage: UNK, 1x/day
     Route: 048
  2. NORVASC [Suspect]
     Dosage: 40 mg, 1x/day
     Route: 048
     Dates: end: 201207
  3. EDARBI [Suspect]
     Indication: BLOOD PRESSURE HIGH
     Dosage: 80 mg, 1x/day
     Dates: start: 2012
  4. CRESTOR [Concomitant]
     Dosage: UNK
     Dates: start: 2012

REACTIONS (1)
  - Oedema peripheral [Recovered/Resolved]
